FAERS Safety Report 21566623 (Version 3)
Quarter: 2023Q1

REPORT INFORMATION
  Report Type: Spontaneous
  Country: US (occurrence: US)
  Receive Date: 20221108
  Receipt Date: 20230111
  Transmission Date: 20230418
  Serious: No
  Sender: FDA-Public Use
  Company Number: US-PFIZER INC-PV202200098044

PATIENT
  Age: 72 Year
  Sex: Male

DRUGS (1)
  1. INLYTA [Suspect]
     Active Substance: AXITINIB
     Dosage: UNK

REACTIONS (8)
  - Diarrhoea [Unknown]
  - Blood pressure increased [Unknown]
  - Limb injury [Recovered/Resolved]
  - Peripheral swelling [Unknown]
  - Gait disturbance [Unknown]
  - Cough [Unknown]
  - Dysphonia [Unknown]
  - Abdominal pain upper [Unknown]
